FAERS Safety Report 19874360 (Version 2)
Quarter: 2021Q4

REPORT INFORMATION
  Report Type: Spontaneous
  Country: JP (occurrence: JP)
  Receive Date: 20210923
  Receipt Date: 20211020
  Transmission Date: 20220303
  Serious: Yes (Other)
  Sender: FDA-Public Use
  Company Number: JP-DSPHARMA-2021DSP014335

PATIENT
  Age: 47 Year
  Sex: Male
  Weight: 50 kg

DRUGS (4)
  1. LATUDA [Suspect]
     Active Substance: LURASIDONE HYDROCHLORIDE
     Indication: Depressive symptom
     Dosage: 20 MG, QD
     Route: 048
     Dates: start: 20210907
  2. DAYVIGO [Suspect]
     Active Substance: LEMBOREXANT
     Indication: Insomnia
     Dosage: 10 MG, QD
     Route: 048
     Dates: start: 20210907
  3. QUAZEPAM [Suspect]
     Active Substance: QUAZEPAM
     Indication: Insomnia
     Dosage: 15 MG, QD
     Route: 048
     Dates: start: 20210907
  4. SERTRALINE HYDROCHLORIDE [Concomitant]
     Active Substance: SERTRALINE HYDROCHLORIDE
     Indication: Depressive symptom
     Dosage: 25 MG, QD
     Route: 048
     Dates: start: 20200203

REACTIONS (1)
  - Mental impairment [Recovered/Resolved]

NARRATIVE: CASE EVENT DATE: 20210908
